FAERS Safety Report 6100709-8 (Version None)
Quarter: 2009Q1

REPORT INFORMATION
  Report Type: 
  Country: None (occurrence: None)
  Receive Date: 20090303
  Receipt Date: 20090224
  Transmission Date: 20090719
  Serious: Yes (Hospitalization)
  Sender: FDA-Public Use
  Company Number: PHHO2009IT02795

PATIENT
  Sex: Male
  Weight: 84 kg

DRUGS (4)
  1. BLINDED ALISKIREN ALI+CTAB [Suspect]
     Indication: HYPERTENSION
     Dosage: CODE NOT BROKEN
     Dates: start: 20081124
  2. BLINDED NO TREATMENT RECEIVED NOMED [Suspect]
     Indication: HYPERTENSION
     Dosage: CODE NOT BROKEN
     Dates: start: 20081124
  3. BLINDED SPA100A SPA+TAB [Suspect]
     Indication: HYPERTENSION
     Dosage: CODE NOT BROKEN
     Dates: start: 20081124
  4. ALISKIREN [Suspect]
     Indication: HYPERTENSION
     Dosage: CODE NOT BROKEN
     Dates: start: 20081124

REACTIONS (1)
  - VERTIGO [None]
